FAERS Safety Report 22902554 (Version 3)
Quarter: 2023Q4

REPORT INFORMATION
  Report Type: Spontaneous
  Country: JP (occurrence: None)
  Receive Date: 20230904
  Receipt Date: 20231120
  Transmission Date: 20240110
  Serious: Yes (Life-Threatening, Hospitalization, Other)
  Sender: FDA-Public Use
  Company Number: 2023A199431

PATIENT
  Age: 70 Year
  Sex: Male

DRUGS (4)
  1. IMFINZI [Suspect]
     Active Substance: DURVALUMAB
     Indication: Bile duct cancer
     Dosage: DOSE UNKNOWN
     Route: 042
     Dates: start: 20230421, end: 20230602
  2. GEMCITABINE HYDROCHLORIDE [Concomitant]
     Active Substance: GEMCITABINE HYDROCHLORIDE
     Indication: Bile duct cancer
     Dosage: DOSE UNKNOWN
     Dates: start: 20230330, end: 20230602
  3. CISPLATIN [Concomitant]
     Active Substance: CISPLATIN
     Indication: Bile duct cancer
     Dosage: DOSE UNKNOWN
     Dates: start: 20230330, end: 20230602
  4. ENTECAVIR HYDRATE [Concomitant]
     Dosage: DOSE UNKNOWN

REACTIONS (7)
  - Pyrexia [Unknown]
  - Decreased appetite [Unknown]
  - Chills [Unknown]
  - Cholangitis [Unknown]
  - Shock [Unknown]
  - Disseminated intravascular coagulation [Unknown]
  - Cytopenia [Unknown]

NARRATIVE: CASE EVENT DATE: 20230609
